FAERS Safety Report 16258478 (Version 3)
Quarter: 2019Q2

REPORT INFORMATION
  Report Type: Spontaneous
  Country: US (occurrence: US)
  Receive Date: 20190430
  Receipt Date: 20190529
  Transmission Date: 20190711
  Serious: No
  Sender: FDA-Public Use
  Company Number: US-BAUSCH-BL-2019-011957

PATIENT
  Sex: Male
  Weight: 65.83 kg

DRUGS (3)
  1. SILIQ [Suspect]
     Active Substance: BRODALUMAB
     Route: 058
     Dates: start: 2019, end: 2019
  2. VITAMIN B12 [Concomitant]
     Active Substance: CYANOCOBALAMIN
     Indication: PRODUCT USED FOR UNKNOWN INDICATION
     Route: 048
  3. SILIQ [Suspect]
     Active Substance: BRODALUMAB
     Indication: PSORIASIS
     Dosage: AS DIRECTED
     Route: 058
     Dates: start: 20190205, end: 2019

REACTIONS (6)
  - Myalgia [Not Recovered/Not Resolved]
  - Insomnia [Not Recovered/Not Resolved]
  - Arthritis [Recovering/Resolving]
  - Red blood cell sedimentation rate increased [Recovering/Resolving]
  - C-reactive protein increased [Not Recovered/Not Resolved]
  - Arthralgia [Not Recovered/Not Resolved]

NARRATIVE: CASE EVENT DATE: 2019
